FAERS Safety Report 15362877 (Version 1)
Quarter: 2018Q3

REPORT INFORMATION
  Report Type: Spontaneous
  Country: GR (occurrence: GR)
  Receive Date: 20180907
  Receipt Date: 20180907
  Transmission Date: 20181010
  Serious: Yes (Hospitalization)
  Sender: FDA-Public Use
  Company Number: GR-AMGEN-GRCSP2018121396

PATIENT
  Age: 79 Year
  Sex: Female

DRUGS (12)
  1. MADOPAR [Concomitant]
     Active Substance: BENSERAZIDE HYDROCHLORIDE\LEVODOPA
     Indication: PARKINSON^S DISEASE
     Dosage: UNK
     Dates: end: 201805
  2. ZOPITEL [Concomitant]
     Dosage: 5 MG, QD
  3. ESPOZA [Concomitant]
     Dosage: 10 MG, QD
  4. LECALCIF [Concomitant]
  5. PROLIA [Suspect]
     Active Substance: DENOSUMAB
     Indication: OSTEOPOROSIS
     Dosage: UNK
     Route: 065
     Dates: start: 201802
  6. SALOSPIR [Concomitant]
     Active Substance: ASPIRIN
     Dosage: 100 MG, QD
  7. GLUCOPHAGE [Concomitant]
     Active Substance: METFORMIN HYDROCHLORIDE
     Indication: DIABETES MELLITUS
     Dosage: 1000 MG, HALF A DAY
  8. CONCOR [Concomitant]
     Active Substance: BISOPROLOL FUMARATE
     Dosage: 5 MG, 1/4 AND THEN 1/2
  9. LOSEC [Concomitant]
     Active Substance: OMEPRAZOLE
     Dosage: 20 MG, QD
  10. ETIAPIN [Concomitant]
     Dosage: 25 MG, 1/2
  11. CILROTON [Concomitant]
     Dosage: UNK UNK, QD
  12. CRESTOR [Concomitant]
     Active Substance: ROSUVASTATIN CALCIUM
     Indication: BLOOD CHOLESTEROL INCREASED
     Dosage: UNK
     Dates: end: 201805

REACTIONS (2)
  - Escherichia urinary tract infection [Unknown]
  - Hepatic enzyme increased [Recovered/Resolved]

NARRATIVE: CASE EVENT DATE: 201805
